FAERS Safety Report 6774954-2 (Version None)
Quarter: 2010Q2

REPORT INFORMATION
  Report Type: 
  Country: None (occurrence: None)
  Receive Date: 20100617
  Receipt Date: 20100609
  Transmission Date: 20101027
  Serious: Yes (Hospitalization)
  Sender: FDA-Public Use
  Company Number: IL-ABBOTT-10P-082-0646971-00

PATIENT
  Sex: Female
  Weight: 75 kg

DRUGS (3)
  1. HUMIRA [Suspect]
     Indication: PSORIATIC ARTHROPATHY
     Dates: start: 20070801, end: 20090101
  2. METHOTREXATE [Concomitant]
     Indication: PSORIATIC ARTHROPATHY
  3. ELTROXIN [Concomitant]
     Indication: HYPOTHYROIDISM

REACTIONS (2)
  - DYSPHONIA [None]
  - VOCAL CORD PARALYSIS [None]
